FAERS Safety Report 6894944-9 (Version None)
Quarter: 2010Q3

REPORT INFORMATION
  Report Type: 
  Country: None (occurrence: None)
  Receive Date: 20100802
  Receipt Date: 20100722
  Transmission Date: 20110219
  Serious: Yes (Hospitalization)
  Sender: FDA-Public Use
  Company Number: US-SANOFI-AVENTIS-2010SA030044

PATIENT
  Age: 24 Year
  Sex: Female
  Weight: 63.95 kg

DRUGS (11)
  1. APIDRA [Suspect]
     Indication: TYPE 1 DIABETES MELLITUS
     Dosage: USES INSULIN PUMP;BRAND NAME NOT PROVIDED
     Dates: start: 20100301
  2. SINGULAIR [Concomitant]
  3. LEXAPRO [Concomitant]
     Indication: ANXIETY
  4. SYMBICORT [Concomitant]
     Indication: ASTHMA
  5. FISH OIL [Concomitant]
  6. CALCIUM [Concomitant]
  7. CLARINEX /USA/ [Concomitant]
  8. MULTI-VITAMINS [Concomitant]
     Dosage: 1 DAILY
  9. MONONESSA [Concomitant]
     Indication: CONTRACEPTION
     Dosage: AS DIRECTED
     Route: 048
  10. RHINOCORT [Concomitant]
  11. AMBIEN [Concomitant]
     Indication: INSOMNIA
     Route: 048

REACTIONS (7)
  - BLOOD GLUCOSE FLUCTUATION [None]
  - BLOOD POTASSIUM DECREASED [None]
  - BLOOD SODIUM DECREASED [None]
  - DIABETIC KETOACIDOSIS [None]
  - GASTROENTERITIS [None]
  - NAUSEA [None]
  - VOMITING [None]
